FAERS Safety Report 13910655 (Version 1)
Quarter: 2017Q3

REPORT INFORMATION
  Report Type: Spontaneous
  Country: CA (occurrence: CA)
  Receive Date: 20170828
  Receipt Date: 20170828
  Transmission Date: 20171127
  Serious: Yes (Hospitalization)
  Sender: FDA-Public Use
  Company Number: CA-ROCHE-1980951

PATIENT
  Sex: Female

DRUGS (3)
  1. HERCEPTIN [Suspect]
     Active Substance: TRASTUZUMAB
     Indication: PRODUCT USED FOR UNKNOWN INDICATION
     Route: 065
  2. ONDANSETRON [Concomitant]
     Active Substance: ONDANSETRON
     Indication: NAUSEA
     Route: 065
  3. PERJETA [Suspect]
     Active Substance: PERTUZUMAB
     Indication: PRODUCT USED FOR UNKNOWN INDICATION
     Route: 065

REACTIONS (15)
  - Malabsorption [Unknown]
  - Onychomadesis [Unknown]
  - Nerve injury [Unknown]
  - Heart rate increased [Unknown]
  - Fatigue [Unknown]
  - Obstruction [Unknown]
  - Autonomic nervous system imbalance [Unknown]
  - Blood pressure decreased [Unknown]
  - Medication error [Unknown]
  - Headache [Unknown]
  - Drug administration error [Unknown]
  - Rash [Unknown]
  - Nausea [Unknown]
  - Ill-defined disorder [Unknown]
  - Diarrhoea [Recovering/Resolving]
